FAERS Safety Report 13689253 (Version 1)
Quarter: 2017Q2

REPORT INFORMATION
  Report Type: Spontaneous
  Country: US (occurrence: US)
  Receive Date: 20170625
  Receipt Date: 20170625
  Transmission Date: 20170830
  Serious: No
  Sender: FDA-Public Use
  Company Number: None

PATIENT
  Age: 33 Year
  Sex: Female
  Weight: 51.75 kg

DRUGS (2)
  1. HYDROXY-THC [Concomitant]
  2. EXCEDRIN MIGRAINE [Suspect]
     Active Substance: ACETAMINOPHEN\ASPIRIN\CAFFEINE
     Indication: MIGRAINE
     Dosage: OTHER STRENGTH:MG;QUANTITY:2 TABLET(S);?
     Route: 048
     Dates: start: 20170625, end: 20170625

REACTIONS (8)
  - Discomfort [None]
  - Irregular breathing [None]
  - Dizziness [None]
  - Thinking abnormal [None]
  - Muscle twitching [None]
  - Dyspnoea [None]
  - Mental impairment [None]
  - Gastric pH decreased [None]

NARRATIVE: CASE EVENT DATE: 20170625
